FAERS Safety Report 23352016 (Version 2)
Quarter: 2025Q1

REPORT INFORMATION
  Report Type: Report from Study
  Country: EG (occurrence: EG)
  Receive Date: 20231229
  Receipt Date: 20250102
  Transmission Date: 20250409
  Serious: Yes (Hospitalization, Other)
  Sender: SANDOZ
  Company Number: EG-SANDOZ-SDZ2023EG072452

PATIENT
  Sex: Male
  Weight: 70 kg

DRUGS (2)
  1. HYRIMOZ [Suspect]
     Active Substance: ADALIMUMAB-ADAZ
     Indication: Behcet^s syndrome
     Dosage: 40 MG (STOPPED DATE: 7 AND 8 MONTHS AGO)
     Route: 058
     Dates: start: 20220423, end: 20231201
  2. HYRIMOZ [Suspect]
     Active Substance: ADALIMUMAB-ADAZ
     Indication: Rheumatoid arthritis

REACTIONS (5)
  - Hospitalisation [Unknown]
  - Therapy cessation [Not Recovered/Not Resolved]
  - Off label use [Not Recovered/Not Resolved]
  - Asthenopia [Not Recovered/Not Resolved]
  - Fatigue [Not Recovered/Not Resolved]
